FAERS Safety Report 7628641-9 (Version None)
Quarter: 2011Q3

REPORT INFORMATION
  Report Type: 
  Country: None (occurrence: None)
  Receive Date: 20110721
  Receipt Date: 20110721
  Transmission Date: 20111222
  Serious: Yes (Hospitalization)
  Sender: FDA-Public Use
  Company Number: None

PATIENT
  Sex: Male
  Weight: 94 kg

DRUGS (18)
  1. REVLIMID [Suspect]
     Indication: PROSTATE CANCER
     Dosage: 25 MG QD PO X21 DAYS
     Route: 048
     Dates: start: 20110314
  2. LYRICA [Concomitant]
  3. M.V.I. [Concomitant]
  4. ALBUTEROL SULFATE AUTOHALER [Concomitant]
  5. TRAVATAN [Concomitant]
  6. AZOPT [Concomitant]
  7. CALCIUM ACETATE [Concomitant]
  8. HYDROCODONE BITARTRATE [Concomitant]
  9. SPIRIVA [Concomitant]
  10. NAMENDA [Concomitant]
  11. SPIRONOLACTONE [Concomitant]
  12. LISINOPRIL [Concomitant]
  13. SEREVENT [Concomitant]
  14. LANTUS [Concomitant]
  15. METOPROLOL TARTRATE [Concomitant]
  16. PULMICORT [Concomitant]
  17. ALPHAGAN [Concomitant]
  18. HUMALOG [Concomitant]

REACTIONS (2)
  - CONDITION AGGRAVATED [None]
  - CHRONIC OBSTRUCTIVE PULMONARY DISEASE [None]
